FAERS Safety Report 16857460 (Version 4)
Quarter: 2021Q4

REPORT INFORMATION
  Report Type: Spontaneous
  Country: US (occurrence: US)
  Receive Date: 20190926
  Receipt Date: 20211215
  Transmission Date: 20220303
  Serious: Yes (Hospitalization, Other)
  Sender: FDA-Public Use
  Company Number: US-GILEAD-2019-0429287

PATIENT
  Age: 42 Year
  Sex: Female
  Weight: 89.342 kg

DRUGS (34)
  1. TRUVADA [Suspect]
     Active Substance: EMTRICITABINE\TENOFOVIR DISOPROXIL FUMARATE
     Indication: HIV infection
     Dosage: UNK
     Route: 048
     Dates: start: 2006
  2. TRUVADA [Suspect]
     Active Substance: EMTRICITABINE\TENOFOVIR DISOPROXIL FUMARATE
     Dosage: UNK
     Route: 048
     Dates: start: 20121213, end: 201502
  3. ATRIPLA [Suspect]
     Active Substance: EFAVIRENZ\EMTRICITABINE\TENOFOVIR DISOPROXIL FUMARATE
     Indication: HIV infection
     Dosage: UNK
     Route: 048
     Dates: start: 2006
  4. ATRIPLA [Suspect]
     Active Substance: EFAVIRENZ\EMTRICITABINE\TENOFOVIR DISOPROXIL FUMARATE
     Dosage: UNK
     Route: 048
     Dates: start: 20150526, end: 20150901
  5. AMLODIPINE [Concomitant]
     Active Substance: AMLODIPINE BESYLATE
     Indication: Hypertension
  6. DOXYCYCLINE [Concomitant]
     Active Substance: DOXYCYCLINE
  7. METOPROLOL [Concomitant]
     Active Substance: METOPROLOL
  8. SYMBICORT [Concomitant]
     Active Substance: BUDESONIDE\FORMOTEROL FUMARATE DIHYDRATE
  9. ESTRADIOL [Concomitant]
     Active Substance: ESTRADIOL
  10. TRIUMEQ [Concomitant]
     Active Substance: ABACAVIR SULFATE\DOLUTEGRAVIR SODIUM\LAMIVUDINE
  11. ALBUTEROL SULFATE [Concomitant]
     Active Substance: ALBUTEROL SULFATE
  12. LEVOFLOXACIN [Concomitant]
     Active Substance: LEVOFLOXACIN
  13. PREDNISONE [Concomitant]
     Active Substance: PREDNISONE
  14. MUPIROCIN [Concomitant]
     Active Substance: MUPIROCIN
  15. OXYCODONE [Concomitant]
     Active Substance: OXYCODONE
  16. PROMETHAZINE [Concomitant]
     Active Substance: PROMETHAZINE HYDROCHLORIDE
  17. ENOXAPARIN [Concomitant]
     Active Substance: ENOXAPARIN
  18. MORPHINE [Concomitant]
     Active Substance: MORPHINE
  19. TRAMADOL [Concomitant]
     Active Substance: TRAMADOL
  20. MEDROXYPROGESTERONE [Concomitant]
     Active Substance: MEDROXYPROGESTERONE
  21. LEXIVA [Concomitant]
     Active Substance: FOSAMPRENAVIR CALCIUM
  22. NORVIR [Concomitant]
     Active Substance: RITONAVIR
  23. CLINDAMYCIN [Concomitant]
     Active Substance: CLINDAMYCIN
  24. PROPYLTHIOURACIL [Concomitant]
     Active Substance: PROPYLTHIOURACIL
  25. VALACYCLOVIR HYDROCHLORIDE [Concomitant]
     Active Substance: VALACYCLOVIR HYDROCHLORIDE
  26. CYCLOBENZAPRINE [Concomitant]
     Active Substance: CYCLOBENZAPRINE
  27. METRONIDAZOLE [Concomitant]
     Active Substance: METRONIDAZOLE
  28. NAPROXEN [Concomitant]
     Active Substance: NAPROXEN
  29. CIPROFLOXACIN [Concomitant]
     Active Substance: CIPROFLOXACIN
  30. BENZONATATE [Concomitant]
     Active Substance: BENZONATATE
  31. AZITHROMYCIN [Concomitant]
     Active Substance: AZITHROMYCIN
  32. MELOXICAM [Concomitant]
     Active Substance: MELOXICAM
  33. PROPRANOLOL [Concomitant]
     Active Substance: PROPRANOLOL HYDROCHLORIDE
  34. SULFAMETHOXAZOLE\TRIMETHOPRIM [Concomitant]
     Active Substance: SULFAMETHOXAZOLE\TRIMETHOPRIM

REACTIONS (14)
  - Osteoporosis [Not Recovered/Not Resolved]
  - Chronic kidney disease [Not Recovered/Not Resolved]
  - Rib fracture [Not Recovered/Not Resolved]
  - Loss of personal independence in daily activities [Not Recovered/Not Resolved]
  - Quality of life decreased [Not Recovered/Not Resolved]
  - Decreased activity [Not Recovered/Not Resolved]
  - Immobile [Unknown]
  - Emotional distress [Not Recovered/Not Resolved]
  - Anhedonia [Not Recovered/Not Resolved]
  - Economic problem [Not Recovered/Not Resolved]
  - Anxiety [Not Recovered/Not Resolved]
  - Pain [Not Recovered/Not Resolved]
  - Anaemia [Not Recovered/Not Resolved]
  - Hyperkalaemia [Not Recovered/Not Resolved]

NARRATIVE: CASE EVENT DATE: 20150420
